FAERS Safety Report 6911043-8 (Version None)
Quarter: 2010Q3

REPORT INFORMATION
  Report Type: 
  Country: None (occurrence: None)
  Receive Date: 20100806
  Receipt Date: 20100803
  Transmission Date: 20110219
  Serious: Yes (Other)
  Sender: FDA-Public Use
  Company Number: B0665495A

PATIENT
  Sex: Male

DRUGS (16)
  1. AVODART [Suspect]
     Route: 048
     Dates: start: 20100625, end: 20100628
  2. ATHYMIL [Suspect]
     Indication: DEPRESSION
     Dosage: 30MG PER DAY
     Route: 048
     Dates: start: 20100622, end: 20100628
  3. AUGMENTIN '125' [Concomitant]
     Route: 065
     Dates: start: 20100614, end: 20100622
  4. OMEPRAZOLE [Concomitant]
     Dosage: 10MG PER DAY
     Route: 065
  5. DILTIAZEM HCL [Concomitant]
     Dosage: 90MG TWICE PER DAY
     Route: 065
  6. FUROSEMIDE [Concomitant]
     Dosage: 40MG PER DAY
     Route: 065
  7. ACETAMINOPHEN W/ PROPOXYPHENE HCL [Concomitant]
     Route: 065
  8. FORADIL [Concomitant]
     Route: 065
  9. LORAZEPAM [Concomitant]
     Route: 065
  10. VOLTAREN [Concomitant]
     Dosage: 100MG PER DAY
     Route: 065
  11. ROVAMYCINE [Concomitant]
     Route: 065
     Dates: start: 20100614, end: 20100622
  12. TAMSULOSINE [Concomitant]
     Route: 065
     Dates: start: 20100625
  13. LASIX [Concomitant]
     Route: 065
     Dates: start: 20100614
  14. KARDEGIC [Concomitant]
     Route: 065
     Dates: start: 20100615
  15. RAMIPRIL [Concomitant]
     Route: 065
     Dates: start: 20100615
  16. TAHOR [Concomitant]
     Route: 065
     Dates: start: 20100622, end: 20100622

REACTIONS (1)
  - MIXED LIVER INJURY [None]
